FAERS Safety Report 5050837-3 (Version None)
Quarter: 2006Q3

REPORT INFORMATION
  Report Type: 
  Country: None (occurrence: None)
  Receive Date: 20060710
  Receipt Date: 20060627
  Transmission Date: 20061208
  Serious: Yes (Hospitalization)
  Sender: FDA-Public Use
  Company Number: 2006081323

PATIENT
  Age: 45 Year
  Sex: Male
  Weight: 67 kg

DRUGS (4)
  1. SUTENT [Suspect]
     Indication: RENAL CELL CARCINOMA STAGE UNSPECIFIED
     Dosage: 50 MG (50 MG, 1 IN 1 D), ORAL
     Route: 048
     Dates: start: 20060529
  2. TRAMADOL HCL [Concomitant]
  3. OXAZEPAM [Concomitant]
  4. VALPROIC ACID [Concomitant]

REACTIONS (3)
  - DIZZINESS [None]
  - HYPERTHYROIDISM [None]
  - TREMOR [None]
